FAERS Safety Report 5198096-5 (Version None)
Quarter: 2006Q4

REPORT INFORMATION
  Report Type: 
  Country: None (occurrence: None)
  Receive Date: 20061228
  Receipt Date: 20061218
  Transmission Date: 20070319
  Serious: Yes (Hospitalization, Other)
  Sender: FDA-Public Use
  Company Number: 2006-06-1383

PATIENT
  Age: 40 Year
  Sex: Female
  Weight: 77.1115 kg

DRUGS (3)
  1. PEG-INTRON [Suspect]
     Indication: HEPATITIS C
     Dosage: 120 MCG; /WK; SC
     Route: 058
     Dates: start: 20060420
  2. REBETOL [Suspect]
     Indication: HEPATITIS C
     Dosage: 400 MG; BID; PO
     Route: 048
     Dates: start: 20060420
  3. ALBUTEROL SULATE [Concomitant]

REACTIONS (18)
  - ANOREXIA [None]
  - CRYING [None]
  - DEHYDRATION [None]
  - DIARRHOEA [None]
  - DRUG INEFFECTIVE [None]
  - HAEMOGLOBIN DECREASED [None]
  - HEADACHE [None]
  - IRRITABILITY [None]
  - LOWER RESPIRATORY TRACT INFECTION [None]
  - MYALGIA [None]
  - NAUSEA [None]
  - PAIN [None]
  - STRESS [None]
  - TOOTH FRACTURE [None]
  - TOOTH INFECTION [None]
  - VOMITING [None]
  - WEIGHT DECREASED [None]
  - WHITE BLOOD CELL COUNT DECREASED [None]
